FAERS Safety Report 10099986 (Version 2)
Quarter: 2014Q2

REPORT INFORMATION
  Report Type: Spontaneous
  Country: US (occurrence: US)
  Receive Date: 20140423
  Receipt Date: 20140423
  Transmission Date: 20141212
  Serious: No
  Sender: FDA-Public Use
  Company Number: US-MYLANLABS-2014S1006703

PATIENT
  Age: 58 Year
  Sex: Female

DRUGS (2)
  1. RIZATRIPTAN BENZOATE ORALLY DISINTEGRATING TABLETS [Suspect]
     Dosage: UP TO 30MG/24 HOURS
     Route: 048
     Dates: start: 20140318, end: 20140318
  2. VITAMIN D3 [Concomitant]
     Indication: OSTEOPOROSIS

REACTIONS (4)
  - Drug ineffective [Recovered/Resolved]
  - Migraine [Recovered/Resolved]
  - Vomiting [Recovered/Resolved]
  - Nausea [Recovered/Resolved]
